FAERS Safety Report 20550809 (Version 3)
Quarter: 2022Q1

REPORT INFORMATION
  Report Type: Spontaneous
  Country: GB (occurrence: GB)
  Receive Date: 20220304
  Receipt Date: 20220328
  Transmission Date: 20220423
  Serious: Yes (Hospitalization)
  Sender: FDA-Public Use
  Company Number: GB-CELGENE-GBR-20211207752

PATIENT
  Age: 72 Year
  Sex: Male
  Weight: 89 kg

DRUGS (19)
  1. AZACITIDINE [Suspect]
     Active Substance: AZACITIDINE
     Indication: Myelodysplastic syndrome
     Route: 058
     Dates: start: 20211221
  2. AZACITIDINE [Suspect]
     Active Substance: AZACITIDINE
     Route: 058
     Dates: start: 20211213, end: 20211213
  3. PLACEBO [Suspect]
     Active Substance: UNSPECIFIED INGREDIENT
     Indication: Myelodysplastic syndrome
     Route: 048
     Dates: start: 20211213, end: 20211213
  4. PLACEBO [Suspect]
     Active Substance: UNSPECIFIED INGREDIENT
     Route: 048
     Dates: start: 20211221
  5. AMLODIPINE [Concomitant]
     Active Substance: AMLODIPINE BESYLATE
     Indication: Hypertension
     Route: 048
     Dates: start: 20210925
  6. CIPROFLOXACIN [Concomitant]
     Active Substance: CIPROFLOXACIN
     Indication: Infection
     Route: 048
     Dates: start: 20211213
  7. OMEPRAZOLE [Concomitant]
     Active Substance: OMEPRAZOLE
     Indication: Gastrooesophageal reflux disease
     Route: 048
     Dates: start: 20210925
  8. POSACONAZOLE [Concomitant]
     Active Substance: POSACONAZOLE
     Indication: Infection
     Route: 048
     Dates: start: 20211213
  9. DOMPERIDONE [Concomitant]
     Active Substance: DOMPERIDONE
     Indication: Nausea
     Route: 048
     Dates: start: 20211213
  10. ALLOPURINOL [Concomitant]
     Active Substance: ALLOPURINOL
     Indication: Prophylaxis
     Route: 048
     Dates: start: 20211213, end: 20211217
  11. ASPIRIN [Concomitant]
     Active Substance: ASPIRIN
     Indication: Cardiovascular insufficiency
     Route: 048
     Dates: start: 20210925
  12. DIHYDROCODEINE [Concomitant]
     Active Substance: DIHYDROCODEINE
     Indication: Pain
     Route: 048
     Dates: start: 20190925
  13. FOLIC ACID [Concomitant]
     Active Substance: FOLIC ACID
     Indication: Vitamin supplementation
     Route: 048
     Dates: start: 20210925
  14. ISOSORBIDE MONONITRATE [Concomitant]
     Active Substance: ISOSORBIDE MONONITRATE
     Indication: Angina pectoris
     Route: 048
     Dates: start: 20210925
  15. ONDANSETRON [Concomitant]
     Active Substance: ONDANSETRON
     Indication: Nausea
     Route: 048
     Dates: start: 20211213
  16. ACETAMINOPHEN [Concomitant]
     Active Substance: ACETAMINOPHEN
     Indication: Pain
     Route: 048
     Dates: start: 20190925
  17. PRAVASTATIN [Concomitant]
     Active Substance: PRAVASTATIN
     Indication: Hypertension
     Route: 048
     Dates: start: 20210925
  18. SODIUM CHLORIDE [Concomitant]
     Active Substance: SODIUM CHLORIDE
     Indication: Oral infection
     Route: 048
     Dates: start: 20211213
  19. TAMSULOSIN [Concomitant]
     Active Substance: TAMSULOSIN
     Indication: Fluid retention
     Route: 048
     Dates: start: 20210925

REACTIONS (6)
  - Hypoxia [Recovered/Resolved]
  - Lower respiratory tract infection [Recovered/Resolved]
  - Neutropenic sepsis [Recovered/Resolved]
  - Pyrexia [Recovered/Resolved]
  - Hypotension [Recovered/Resolved]
  - Neutropenic sepsis [Recovered/Resolved]

NARRATIVE: CASE EVENT DATE: 20211214
